FAERS Safety Report 11594511 (Version 1)
Quarter: 2015Q4

REPORT INFORMATION
  Report Type: Spontaneous
  Country: FR (occurrence: FR)
  Receive Date: 20151005
  Receipt Date: 20151005
  Transmission Date: 20160304
  Serious: Yes (Life-Threatening)
  Sender: FDA-Public Use
  Company Number: FR-FRESENIUS KABI-FK201504750

PATIENT
  Age: 23 Year
  Sex: Female

DRUGS (4)
  1. NIMBEX [Suspect]
     Active Substance: CISATRACURIUM BESYLATE
     Indication: GENERAL ANAESTHESIA
     Route: 042
     Dates: start: 20150706, end: 20150706
  2. PROPOFOL 1% FRESENIUS [Suspect]
     Active Substance: PROPOFOL
     Indication: GENERAL ANAESTHESIA
     Route: 042
     Dates: start: 20150706, end: 20150706
  3. CELOCURINE [Suspect]
     Active Substance: SUCCINYLCHOLINE CHLORIDE
     Indication: GENERAL ANAESTHESIA
     Route: 042
     Dates: start: 20150706, end: 20150706
  4. SUFENTA [Suspect]
     Active Substance: SUFENTANIL CITRATE
     Indication: GENERAL ANAESTHESIA
     Route: 042
     Dates: start: 20150706, end: 20150706

REACTIONS (2)
  - Anaphylactic shock [Recovered/Resolved]
  - Bronchospasm [Recovered/Resolved]

NARRATIVE: CASE EVENT DATE: 20150706
